FAERS Safety Report 4300319-9 (Version None)
Quarter: 2004Q1

REPORT INFORMATION
  Report Type: 
  Country: None (occurrence: None)
  Receive Date: 20040218
  Receipt Date: 20040218
  Transmission Date: 20041129
  Serious: Yes (Hospitalization)
  Sender: FDA-Public Use
  Company Number: None

PATIENT
  Age: 29 Year
  Sex: Male
  Weight: 85.2762 kg

DRUGS (3)
  1. REMERON [Suspect]
     Indication: SOCIAL PHOBIA
     Dosage: 1 DAILY ORAL
     Route: 048
     Dates: start: 20021006, end: 20040215
  2. VICODIN [Concomitant]
  3. XANAX [Concomitant]

REACTIONS (6)
  - AMNESIA [None]
  - CONVULSION [None]
  - FATIGUE [None]
  - HEAT STROKE [None]
  - HYPERSOMNIA [None]
  - PANIC ATTACK [None]
